FAERS Safety Report 20945414 (Version 1)
Quarter: 2022Q2

REPORT INFORMATION
  Report Type: Spontaneous
  Country: US (occurrence: None)
  Receive Date: 20220609
  Receipt Date: 20220609
  Transmission Date: 20220721
  Serious: Yes (Other)
  Sender: FDA-Public Use
  Company Number: None

PATIENT
  Age: 59 Year
  Sex: Female

DRUGS (2)
  1. BACTERIOSTATIC WATER [Suspect]
     Active Substance: WATER
     Indication: Migraine
     Route: 030
     Dates: start: 20220603
  2. BOTOX [Suspect]
     Active Substance: ONABOTULINUMTOXINA
     Dates: start: 20220603

REACTIONS (3)
  - Eye pain [None]
  - Eye swelling [None]
  - Paraesthesia [None]

NARRATIVE: CASE EVENT DATE: 20220603
